FAERS Safety Report 17367250 (Version 1)
Quarter: 2020Q1

REPORT INFORMATION
  Report Type: Report from Study
  Country: IT (occurrence: IT)
  Receive Date: 20200204
  Receipt Date: 20200204
  Transmission Date: 20200409
  Serious: Yes (Hospitalization)
  Sender: FDA-Public Use
  Company Number: IT-MYLANLABS-2020M1011912

PATIENT
  Age: 86 Year
  Sex: Female

DRUGS (1)
  1. IBUPROFEN. [Suspect]
     Active Substance: IBUPROFEN
     Indication: OSTEOARTHRITIS
     Dosage: 600 MILLIGRAM, QD
     Route: 048
     Dates: start: 20171030, end: 20191030

REACTIONS (4)
  - Gastrointestinal haemorrhage [Unknown]
  - Intentional product misuse [Unknown]
  - Anaemia [Unknown]
  - Overdose [Unknown]

NARRATIVE: CASE EVENT DATE: 20191030
